FAERS Safety Report 9321112 (Version 1)
Quarter: 2013Q2

REPORT INFORMATION
  Report Type: Spontaneous
  Country: CH (occurrence: CH)
  Receive Date: 20130531
  Receipt Date: 20130531
  Transmission Date: 20140414
  Serious: Yes (Other)
  Sender: FDA-Public Use
  Company Number: CH-ELI_LILLY_AND_COMPANY-US_0412109521

PATIENT
  Age: 50 Year
  Sex: Male

DRUGS (4)
  1. PERGOLIDE [Suspect]
     Indication: PARKINSON^S DISEASE
     Dosage: 3.5 MG, DAILY (1/D)
  2. TOLCAPONE [Concomitant]
     Indication: PARKINSON^S DISEASE
     Dosage: 600 MG, DAILY (1/D)
     Dates: end: 199811
  3. L-DOPA [Concomitant]
     Indication: PARKINSON^S DISEASE
     Dosage: 800 MG, DAILY (1/D)
  4. ENTACAPONE [Concomitant]
     Indication: PARKINSON^S DISEASE
     Dosage: 800 MG, DAILY (1/D)

REACTIONS (4)
  - Suicide attempt [Unknown]
  - Pathological gambling [Recovered/Resolved]
  - Depression [Unknown]
  - Hypokinesia [Unknown]
